FAERS Safety Report 9969729 (Version 1)
Quarter: 2014Q1

REPORT INFORMATION
  Report Type: Spontaneous
  Country: None (occurrence: US)
  Receive Date: 20140306
  Receipt Date: 20140306
  Transmission Date: 20141002
  Serious: Yes (Life-Threatening, Hospitalization)
  Sender: FDA-Public Use
  Company Number: US-ACCORD-022225

PATIENT
  Age: 35 Year
  Sex: Male

DRUGS (3)
  1. AMLODIPINE [Suspect]
     Dosage: APPROXIMATELY INGESTED 30 AMLODIPINE 5-MG TABLETS (150 MG)
  2. VERAPAMIL [Suspect]
     Dosage: APPROXIMATELY INGESTED 57 VERAPAMIL EXTENDED RELEASE 180-MG TABLETS (10.26 G)
  3. METOPROLOL [Suspect]
     Dosage: APPROXIMATELY INGESTED 47 METOPROLOL 25-MG TABLETS (1.18 G)

REACTIONS (7)
  - Intentional overdose [Unknown]
  - Suicide attempt [Unknown]
  - Sinus bradycardia [Unknown]
  - Renal failure acute [Unknown]
  - Hyperkalaemia [Unknown]
  - Lactic acidosis [Unknown]
  - Shock [Unknown]
